FAERS Safety Report 8318723-0 (Version None)
Quarter: 2012Q2

REPORT INFORMATION
  Report Type: 
  Country: None (occurrence: None)
  Receive Date: 20120427
  Receipt Date: 20120416
  Transmission Date: 20120825
  Serious: Yes (Life-Threatening, Other)
  Sender: FDA-Public Use
  Company Number: CA-JNJFOC-20120209987

PATIENT
  Sex: Female
  Weight: 100 kg

DRUGS (2)
  1. REMICADE [Suspect]
     Route: 042
  2. REMICADE [Suspect]
     Indication: CROHN'S DISEASE
     Route: 042
     Dates: start: 20120416, end: 20120416

REACTIONS (9)
  - WHEEZING [None]
  - CHILLS [None]
  - MALAISE [None]
  - DYSPNOEA [None]
  - PRURITUS [None]
  - NAUSEA [None]
  - LIVEDO RETICULARIS [None]
  - FLUSHING [None]
  - INFUSION RELATED REACTION [None]
